FAERS Safety Report 6262302-6 (Version None)
Quarter: 2009Q3

REPORT INFORMATION
  Report Type: 
  Country: None (occurrence: None)
  Receive Date: 20090709
  Receipt Date: 20090706
  Transmission Date: 20100115
  Serious: Yes (Other)
  Sender: FDA-Public Use
  Company Number: US-BRISTOL-MYERS SQUIBB COMPANY-14209993

PATIENT
  Age: 58 Year
  Sex: Female

DRUGS (11)
  1. ORENCIA [Suspect]
     Indication: RHEUMATOID ARTHRITIS
     Route: 042
     Dates: start: 20070701, end: 20080101
  2. PREDNISONE [Concomitant]
     Indication: RHEUMATOID ARTHRITIS
  3. TRAMADOL [Concomitant]
  4. LEVOXYL [Concomitant]
  5. NEXIUM [Concomitant]
  6. ACTIMOL [Concomitant]
  7. MUSCLE RELAXANT [Concomitant]
  8. ROSUVASTATIN CALCIUM [Concomitant]
  9. TINZAPARIN [Concomitant]
  10. VITAMINS [Concomitant]
  11. METHOTREXATE [Concomitant]
     Indication: RHEUMATOID ARTHRITIS

REACTIONS (5)
  - AMNESIA [None]
  - HEADACHE [None]
  - LIVER DISORDER [None]
  - NOCTURIA [None]
  - POLYURIA [None]
